FAERS Safety Report 7285027-7 (Version None)
Quarter: 2011Q1

REPORT INFORMATION
  Report Type: 
  Country: None (occurrence: None)
  Receive Date: 20110210
  Receipt Date: 20110126
  Transmission Date: 20110831
  Serious: Yes (Hospitalization, Other)
  Sender: FDA-Public Use
  Company Number: US-ELI_LILLY_AND_COMPANY-US201101006655

PATIENT
  Sex: Female

DRUGS (2)
  1. HUMALOG [Suspect]
  2. SODIUM CHLORIDE [Suspect]
     Dates: start: 20110111, end: 20110122

REACTIONS (3)
  - WRONG DRUG ADMINISTERED [None]
  - DRUG DISPENSING ERROR [None]
  - HOSPITALISATION [None]
